FAERS Safety Report 9834941 (Version 1)
Quarter: 2014Q1

REPORT INFORMATION
  Report Type: Spontaneous
  Country: DE (occurrence: DE)
  Receive Date: 20140122
  Receipt Date: 20140122
  Transmission Date: 20141002
  Serious: Yes (Death)
  Sender: FDA-Public Use
  Company Number: DE-GLAXOSMITHKLINE-B0962473A

PATIENT
  Age: 33 Year
  Sex: Female

DRUGS (6)
  1. PACLITAXEL [Suspect]
     Indication: BREAST CANCER
     Route: 065
     Dates: start: 200912
  2. LAPATINIB [Suspect]
     Dosage: 250MG TWICE PER DAY
     Route: 065
  3. CAPECITABINE [Suspect]
     Dosage: 3000MG PER DAY
     Route: 065
     Dates: start: 200902
  4. CELECOXIB [Suspect]
     Dosage: 400MG PER DAY
     Route: 065
     Dates: start: 200902
  5. CARBOPLATIN [Suspect]
     Route: 065
     Dates: start: 200912
  6. BEVACIZUMAB [Suspect]
     Route: 065
     Dates: start: 200902

REACTIONS (4)
  - Malignant melanoma [Unknown]
  - Death [Fatal]
  - Neurological decompensation [Unknown]
  - Gait disturbance [Unknown]
